FAERS Safety Report 24110054 (Version 1)
Quarter: 2024Q3

REPORT INFORMATION
  Report Type: Spontaneous
  Country: CA (occurrence: CA)
  Receive Date: 20240718
  Receipt Date: 20240718
  Transmission Date: 20241017
  Serious: Yes (Other)
  Sender: CELLTRION
  Company Number: CA-CELLTRION INC.-2024CA016847

PATIENT

DRUGS (5)
  1. TRASTUZUMAB [Suspect]
     Active Substance: TRASTUZUMAB
     Indication: HER2 positive breast cancer
     Dosage: 370.0 MILLIGRAM, 1 EVERY 3 WEEKS
     Route: 042
  2. TRASTUZUMAB [Suspect]
     Active Substance: TRASTUZUMAB
     Dosage: 370.0 MILLIGRAM, 1 EVERY 3 WEEKS
     Route: 042
  3. TRASTUZUMAB [Suspect]
     Active Substance: TRASTUZUMAB
     Dosage: 370.0 MILLIGRAM, 1 EVERY 3 WEEKS
     Route: 042
  4. AVENTYL [Concomitant]
     Active Substance: NORTRIPTYLINE HYDROCHLORIDE
  5. PANTOPRAZOLE SODIUM [Concomitant]
     Active Substance: PANTOPRAZOLE SODIUM

REACTIONS (10)
  - Abdominal pain upper [Unknown]
  - Chest discomfort [Unknown]
  - Flatulence [Unknown]
  - Anxiety [Unknown]
  - Constipation [Unknown]
  - Diarrhoea [Unknown]
  - Dry skin [Unknown]
  - Nausea [Unknown]
  - Neutrophil count decreased [Unknown]
  - Underdose [Unknown]
